FAERS Safety Report 8575184-4 (Version None)
Quarter: 2012Q3

REPORT INFORMATION
  Report Type: 
  Country: None (occurrence: None)
  Receive Date: 20120807
  Receipt Date: 20120725
  Transmission Date: 20120928
  Serious: Yes (Hospitalization)
  Sender: FDA-Public Use
  Company Number: US-ELI_LILLY_AND_COMPANY-US201207008347

PATIENT
  Sex: Female

DRUGS (8)
  1. CYMBALTA [Suspect]
     Indication: MIGRAINE
     Dosage: 60 MG, BID
     Route: 065
  2. LAMICTAL [Concomitant]
  3. ISOMETHEPTENE [Concomitant]
  4. INDOMETHACIN [Concomitant]
  5. NAPROSYN [Concomitant]
  6. LEVOTHROID [Concomitant]
  7. VALTREX [Concomitant]
  8. NEURONTIN [Concomitant]

REACTIONS (11)
  - HYPERHIDROSIS [None]
  - MIGRAINE [None]
  - DISORIENTATION [None]
  - PRURITUS [None]
  - DRUG WITHDRAWAL SYNDROME [None]
  - CONFUSIONAL STATE [None]
  - RETCHING [None]
  - OFF LABEL USE [None]
  - DYSARTHRIA [None]
  - VOMITING [None]
  - VISION BLURRED [None]
